FAERS Safety Report 9437200 (Version 1)
Quarter: 2013Q3

REPORT INFORMATION
  Report Type: Spontaneous
  Country: ES (occurrence: ES)
  Receive Date: 20130802
  Receipt Date: 20130802
  Transmission Date: 20140515
  Serious: Yes (Other)
  Sender: FDA-Public Use
  Company Number: PHHY2013ES080447

PATIENT
  Age: 80 Year
  Sex: Male

DRUGS (1)
  1. SANDIMMUN NEORAL / OL [Suspect]
     Route: 048
     Dates: start: 2010, end: 2010

REACTIONS (2)
  - Renal impairment [Unknown]
  - Medication error [Unknown]
